FAERS Safety Report 6432260-X (Version None)
Quarter: 2009Q4

REPORT INFORMATION
  Report Type: 
  Country: None (occurrence: None)
  Receive Date: 20091109
  Receipt Date: 20091027
  Transmission Date: 20100525
  Serious: No
  Sender: FDA-Public Use
  Company Number: PHHY2009DE29587

PATIENT
  Sex: Male
  Weight: 92 kg

DRUGS (4)
  1. RASILEZ [Suspect]
     Indication: HYPERTENSION
     Dosage: 1 DF, QD
     Route: 048
     Dates: start: 20081001
  2. TORSEMIDE [Concomitant]
     Dosage: 10 MG
     Dates: start: 19990101
  3. ATORVASTATIN CALCIUM [Concomitant]
     Dosage: UNK
     Dates: start: 19990101
  4. ASPIRIN [Concomitant]
     Dosage: UNK

REACTIONS (1)
  - WEIGHT INCREASED [None]
